FAERS Safety Report 5276410-X (Version None)
Quarter: 2007Q1

REPORT INFORMATION
  Report Type: 
  Country: None (occurrence: None)
  Receive Date: 20061213
  Receipt Date: 20031029
  Transmission Date: 20070707
  Serious: Yes (Hospitalization)
  Sender: FDA-Public Use
  Company Number: 2003UW12236

PATIENT
  Age: 65 Year
  Sex: Male
  Weight: 67.586 kg

DRUGS (4)
  1. SEROQUEL [Suspect]
     Indication: PSYCHOTIC DISORDER
     Dosage: 250-300 MG DAILY PO
     Route: 048
     Dates: end: 20031002
  2. TOPAMAX [Concomitant]
  3. TRAZODONE HCL [Concomitant]
  4. PAXIL [Concomitant]

REACTIONS (3)
  - ABNORMAL BEHAVIOUR [None]
  - AGITATION [None]
  - THROMBOCYTOPENIA [None]
